FAERS Safety Report 8190663-X (Version None)
Quarter: 2012Q1

REPORT INFORMATION
  Report Type: 
  Country: None (occurrence: None)
  Receive Date: 20120221
  Receipt Date: 20111116
  Transmission Date: 20120608
  Serious: Yes (Hospitalization)
  Sender: FDA-Public Use
  Company Number: 1000025553

PATIENT
  Age: 87 Year
  Sex: Female

DRUGS (5)
  1. MIRTAZAPINE [Concomitant]
  2. VIIBRYD [Suspect]
     Indication: MAJOR DEPRESSION
     Dosage: 10 MG (10 MG,1 IN 1 D),ORAL ; 20 MG (20 MG,1 IN 1 D),ORAL
     Route: 048
     Dates: start: 20110915, end: 20110921
  3. VIIBRYD [Suspect]
     Indication: MAJOR DEPRESSION
     Dosage: 10 MG (10 MG,1 IN 1 D),ORAL ; 20 MG (20 MG,1 IN 1 D),ORAL
     Route: 048
     Dates: start: 20110922, end: 20110928
  4. VIIBRYD [Suspect]
     Indication: MAJOR DEPRESSION
     Dosage: 40 MG (40 MG,1 IN 1 D),ORAL
     Route: 048
     Dates: start: 20110929, end: 20111101
  5. LORAZEPAM [Concomitant]

REACTIONS (3)
  - MANIA [None]
  - ANGER [None]
  - AGITATION [None]
